FAERS Safety Report 15663346 (Version 2)
Quarter: 2018Q4

REPORT INFORMATION
  Report Type: Spontaneous
  Country: BE (occurrence: BE)
  Receive Date: 20181128
  Receipt Date: 20181209
  Transmission Date: 20190205
  Serious: Yes (Other)
  Sender: FDA-Public Use
  Company Number: BE-BEH-2018097084

PATIENT
  Sex: Male

DRUGS (2)
  1. PRIVIGEN [Suspect]
     Active Substance: HUMAN IMMUNOGLOBULIN G
     Indication: BRUTON^S AGAMMAGLOBULINAEMIA
  2. PRIVIGEN [Suspect]
     Active Substance: HUMAN IMMUNOGLOBULIN G
     Indication: PRODUCT USED FOR UNKNOWN INDICATION
     Dosage: 400 MG/KG/WEEK TO 0.8G/KG/WEEK, ROUGHLY 8 WEEKS
     Route: 042

REACTIONS (1)
  - Seizure [Unknown]
